FAERS Safety Report 12757461 (Version 1)
Quarter: 2016Q3

REPORT INFORMATION
  Report Type: Spontaneous
  Country: US (occurrence: US)
  Receive Date: 20160919
  Receipt Date: 20160919
  Transmission Date: 20161109
  Serious: No
  Sender: FDA-Public Use
  Company Number: US-ALVOGEN-2016-ALVOGEN-026815

PATIENT
  Age: 61 Year
  Sex: Female

DRUGS (6)
  1. ACETAMINOPHEN W/OXYCODONE [Suspect]
     Active Substance: ACETAMINOPHEN\OXYCODONE HYDROCHLORIDE
     Indication: PAIN
     Dosage: OXY/APAP 5/325 MG TABLETS AS NEEDED
     Route: 048
     Dates: start: 20160511
  2. LORATADINE. [Concomitant]
     Active Substance: LORATADINE
  3. ACETYLSALICYLIC ACID [Concomitant]
     Active Substance: ASPIRIN
  4. ERGOCALCIFEROL. [Concomitant]
     Active Substance: ERGOCALCIFEROL
  5. LISINOPRIL. [Concomitant]
     Active Substance: LISINOPRIL
  6. VITAMIN B [Concomitant]
     Active Substance: VITAMIN B

REACTIONS (3)
  - Swelling face [Recovered/Resolved]
  - Drug ineffective [Recovered/Resolved]
  - Pruritus [Not Recovered/Not Resolved]

NARRATIVE: CASE EVENT DATE: 201605
